FAERS Safety Report 6543368-2 (Version None)
Quarter: 2010Q1

REPORT INFORMATION
  Report Type: 
  Country: None (occurrence: None)
  Receive Date: 20100120
  Receipt Date: 20100107
  Transmission Date: 20100710
  Serious: Yes (Hospitalization)
  Sender: FDA-Public Use
  Company Number: US-JNJFOC-20100101034

PATIENT
  Age: 68 Year
  Sex: Female
  Weight: 90.72 kg

DRUGS (12)
  1. TYLENOL (CAPLET) [Suspect]
     Indication: ARTHRITIS
     Route: 048
  2. TYLENOL (CAPLET) [Suspect]
     Indication: FIBROMYALGIA
     Route: 048
  3. PLAVIX [Concomitant]
     Indication: ANTICOAGULANT THERAPY
  4. COREG [Concomitant]
     Indication: HYPERTENSION
  5. LISINOPRIL [Concomitant]
     Indication: HYPERTENSION
  6. ASPIRIN [Concomitant]
     Indication: CARDIAC DISORDER
  7. LASIX [Concomitant]
     Indication: FLUID RETENTION
  8. LIPITOR [Concomitant]
     Indication: BLOOD CHOLESTEROL INCREASED
  9. GLYBURIDE AND METFORMIN HYDROCHLORIDE [Concomitant]
     Indication: TYPE 2 DIABETES MELLITUS
     Dosage: 1 DOSE= 2.5/500 MG; 1 DOSE 3 TIMES DAILY
  10. POTASSIUM [Concomitant]
     Indication: MEDICAL DIET
  11. ONE-A-DAY MULTIVITAMINS [Concomitant]
     Indication: MEDICAL DIET
  12. VITAMIN C [Concomitant]
     Indication: MEDICAL DIET

REACTIONS (4)
  - GASTRIC DISORDER [None]
  - NAUSEA [None]
  - PRODUCT QUALITY ISSUE [None]
  - VOMITING [None]
